FAERS Safety Report 8361806-X (Version None)
Quarter: 2012Q2

REPORT INFORMATION
  Report Type: 
  Country: None (occurrence: None)
  Receive Date: 20120515
  Receipt Date: 20120508
  Transmission Date: 20120825
  Serious: Yes (Hospitalization, Other)
  Sender: FDA-Public Use
  Company Number: ES-GLAXOSMITHKLINE-B0606949A

PATIENT
  Age: 40 Year
  Sex: Male

DRUGS (1)
  1. PROPAFENONE HYDROCHLORIDE [Suspect]
     Indication: ATRIAL FIBRILLATION
     Dosage: 300MG PER DAY
     Route: 048
     Dates: start: 20090915

REACTIONS (6)
  - NAUSEA [None]
  - HAEMATURIA [None]
  - VOMITING [None]
  - HEADACHE [None]
  - ABDOMINAL PAIN [None]
  - PORPHYRIA ACUTE [None]
